FAERS Safety Report 8390767-2 (Version None)
Quarter: 2012Q2

REPORT INFORMATION
  Report Type: 
  Country: None (occurrence: None)
  Receive Date: 20120529
  Receipt Date: 20120522
  Transmission Date: 20120825
  Serious: Yes (Hospitalization)
  Sender: FDA-Public Use
  Company Number: US-BAYER-2011-090597

PATIENT
  Age: 46 Year
  Sex: Female
  Weight: 104.31 kg

DRUGS (11)
  1. YAZ [Suspect]
     Indication: MENOPAUSAL SYMPTOMS
  2. MULTI-VITAMIN [Concomitant]
     Dosage: UNK, DAILY
     Route: 048
     Dates: start: 20090816
  3. CYCLOBENAZPRINE [Concomitant]
  4. PERCOCET [Concomitant]
  5. ASPIRIN [Concomitant]
     Dosage: 81 MG, UNK
     Dates: start: 20090816
  6. YAZ [Suspect]
     Indication: PREMENSTRUAL SYNDROME
     Dosage: UNK
     Dates: start: 20090601, end: 20090801
  7. PAXIL [Concomitant]
     Indication: ANXIETY
     Dosage: 10 MG, UNK
     Route: 048
     Dates: start: 19900101
  8. OXAPROZIN [Concomitant]
     Dosage: 600 MG, UNK
     Route: 048
  9. FLUTICASONE FUROATE [Concomitant]
     Dosage: UNK
  10. ALPRAZOLAM [Concomitant]
     Dosage: 0.25 MG, UNK
     Route: 048
  11. PANTOPRAZOLE [Concomitant]

REACTIONS (6)
  - INJURY [None]
  - PULMONARY EMBOLISM [None]
  - EMOTIONAL DISTRESS [None]
  - PAIN [None]
  - ANXIETY [None]
  - MENTAL DISORDER [None]
